FAERS Safety Report 5424064-1 (Version None)
Quarter: 2007Q3

REPORT INFORMATION
  Report Type: 
  Country: None (occurrence: None)
  Receive Date: 20070823
  Receipt Date: 20070816
  Transmission Date: 20080115
  Serious: Yes (Hospitalization, Other)
  Sender: FDA-Public Use
  Company Number: US-SHR-US-2007-030889

PATIENT
  Age: 43 Year
  Sex: Female

DRUGS (2)
  1. YASMIN [Suspect]
     Dosage: 1 TAB(S), 1X/DAY
     Route: 048
  2. YASMIN [Suspect]
     Dosage: 1 TAB(S), 1X/DAY
     Route: 048

REACTIONS (11)
  - AMENORRHOEA [None]
  - ANAEMIA [None]
  - ANXIETY [None]
  - BLOOD ELECTROLYTES ABNORMAL [None]
  - DEPRESSION [None]
  - DEPRESSION SUICIDAL [None]
  - FLUID RETENTION [None]
  - GASTROINTESTINAL HAEMORRHAGE [None]
  - MOOD ALTERED [None]
  - OEDEMA PERIPHERAL [None]
  - VAGINAL HAEMORRHAGE [None]
